FAERS Safety Report 8263637-8 (Version None)
Quarter: 2012Q2

REPORT INFORMATION
  Report Type: 
  Country: None (occurrence: None)
  Receive Date: 20120405
  Receipt Date: 20120330
  Transmission Date: 20120825
  Serious: Yes (Hospitalization)
  Sender: FDA-Public Use
  Company Number: US-AMGEN-USASP2011044479

PATIENT
  Age: 63 Year
  Sex: Female
  Weight: 110.66 kg

DRUGS (14)
  1. PROLIA [Suspect]
     Indication: OSTEOPOROSIS POSTMENOPAUSAL
     Dosage: 60 MG, Q6MO
     Dates: start: 20110217
  2. CALCIUM W/VITAMIN D                /01438101/ [Concomitant]
  3. CELLCEPT [Concomitant]
     Dosage: 750 MG, BID
     Route: 048
  4. LANTUS [Concomitant]
     Dosage: 35 IU, QHS
     Route: 058
  5. LEVOTHYROXINE SODIUM [Concomitant]
     Dosage: 150 MUG, QD
     Route: 048
  6. PROGRAF [Concomitant]
     Dosage: 2 MG, BID
     Route: 048
  7. MIRALAX                            /00754501/ [Concomitant]
     Dosage: 17 G, QD
     Route: 048
  8. CHOLECALCIFEROL [Concomitant]
     Dosage: UNK UNK, QD
     Route: 048
  9. VICODIN [Concomitant]
     Dosage: UNK UNK, PRN
  10. ASPIRIN [Concomitant]
     Dosage: 325 MG, QD
     Route: 048
  11. TOPAMAX [Concomitant]
     Dosage: 200 MG, QHS
     Route: 048
  12. AMLODIPINE [Concomitant]
     Dosage: 10 MG, QD
     Route: 048
  13. HUMALOG [Concomitant]
     Dosage: 20 IU, UNK
  14. SIMVASTATIN [Concomitant]
     Dosage: 10 MG, QHS
     Route: 048

REACTIONS (3)
  - APHASIA [None]
  - PERINEPHRIC ABSCESS [None]
  - LEFT VENTRICULAR HYPERTROPHY [None]
